FAERS Safety Report 6724818-5 (Version None)
Quarter: 2010Q2

REPORT INFORMATION
  Report Type: 
  Country: None (occurrence: None)
  Receive Date: 20100513
  Receipt Date: 20100513
  Transmission Date: 20101027
  Serious: Yes (Death)
  Sender: FDA-Public Use
  Company Number: None

PATIENT
  Sex: Female
  Weight: 62.6 kg

DRUGS (2)
  1. CITALOPRAM HYDROBROMIDE [Suspect]
     Dosage: 20 MG DAILY PO
     Route: 048
  2. CITALOPRAM HYDROBROMIDE [Suspect]
     Dosage: 40 MG DAILY PO
     Route: 048

REACTIONS (8)
  - AGONAL RHYTHM [None]
  - APNOEIC ATTACK [None]
  - DISCOMFORT [None]
  - INCORRECT DOSE ADMINISTERED [None]
  - PETIT MAL EPILEPSY [None]
  - PULSE ABSENT [None]
  - VENTRICULAR FIBRILLATION [None]
  - VENTRICULAR TACHYCARDIA [None]
